FAERS Safety Report 16383578 (Version 3)
Quarter: 2019Q3

REPORT INFORMATION
  Report Type: Spontaneous
  Country: US (occurrence: US)
  Receive Date: 20190603
  Receipt Date: 20190708
  Transmission Date: 20191004
  Serious: No
  Sender: FDA-Public Use
  Company Number: US-SA-2015SA125212

PATIENT
  Age: 61 Year
  Sex: Female

DRUGS (3)
  1. LANTUS SOLOSTAR [Suspect]
     Active Substance: INSULIN GLARGINE
     Indication: TYPE 2 DIABETES MELLITUS
     Dosage: 55 U, HS
     Route: 065
  2. LANTUS SOLOSTAR [Suspect]
     Active Substance: INSULIN GLARGINE
     Dosage: 50 U, QD
     Route: 065
  3. NOVOLOG [Concomitant]
     Active Substance: INSULIN ASPART
     Dosage: UNK UNK,TID
     Route: 065

REACTIONS (8)
  - Urticaria [Unknown]
  - Injection site haemorrhage [Unknown]
  - Injection site hypersensitivity [Unknown]
  - Product quality issue [Unknown]
  - Product contamination with body fluid [Unknown]
  - Injection site erythema [Unknown]
  - Injection site pain [Unknown]
  - Product dose omission [Unknown]
